FAERS Safety Report 15972971 (Version 1)
Quarter: 2019Q1

REPORT INFORMATION
  Report Type: Spontaneous
  Country: US (occurrence: US)
  Receive Date: 20190216
  Receipt Date: 20190216
  Transmission Date: 20190418
  Serious: No
  Sender: FDA-Public Use
  Company Number: US-IPSEN BIOPHARMACEUTICALS, INC.-2019-02172

PATIENT
  Sex: Male
  Weight: 7.7 kg

DRUGS (2)
  1. SOMATULINE [Suspect]
     Active Substance: LANREOTIDE ACETATE
     Indication: OFF LABEL USE
  2. SOMATULINE [Suspect]
     Active Substance: LANREOTIDE ACETATE
     Indication: HYPERINSULINAEMIA
     Route: 065
     Dates: start: 20181212

REACTIONS (3)
  - Product use issue [Unknown]
  - Off label use [Unknown]
  - Injection site nodule [Recovering/Resolving]
